FAERS Safety Report 5868197-4 (Version None)
Quarter: 2008Q3

REPORT INFORMATION
  Report Type: 
  Country: None (occurrence: None)
  Receive Date: 20080902
  Receipt Date: 20080825
  Transmission Date: 20090109
  Serious: Yes (Hospitalization, Other)
  Sender: FDA-Public Use
  Company Number: FR-AMGEN-US288403

PATIENT
  Age: 45 Year
  Sex: Male

DRUGS (1)
  1. ENBREL [Suspect]
     Indication: DRUG USE FOR UNKNOWN INDICATION
     Dosage: 50 MG (FREQUENCY UNKNOWN)
     Route: 058
     Dates: start: 20070101, end: 20080702

REACTIONS (6)
  - FALL [None]
  - FATIGUE [None]
  - HYPOTONIA [None]
  - SAPHO SYNDROME [None]
  - STATUS EPILEPTICUS [None]
  - SUDDEN ONSET OF SLEEP [None]
